FAERS Safety Report 18441065 (Version 1)
Quarter: 2020Q4

REPORT INFORMATION
  Report Type: Spontaneous
  Country: GB (occurrence: GB)
  Receive Date: 20201029
  Receipt Date: 20201029
  Transmission Date: 20210114
  Serious: Yes (Hospitalization)
  Sender: FDA-Public Use
  Company Number: GB-STRIDES ARCOLAB LIMITED-2020SP012927

PATIENT
  Age: 66 Year
  Sex: Female

DRUGS (4)
  1. TRIAMCINOLONE ACETONIDE. [Suspect]
     Active Substance: TRIAMCINOLONE ACETONIDE
     Indication: OSTEOARTHRITIS
     Dosage: 40 MILLIGRAM, INJECTION, DILUTED WITH BUPIVACAINE
     Route: 014
  2. LIDOCAINE. [Concomitant]
     Active Substance: LIDOCAINE
     Indication: OSTEOARTHRITIS
     Dosage: UNK
     Route: 065
  3. BUPIVACAINE. [Concomitant]
     Active Substance: BUPIVACAINE
     Indication: OSTEOARTHRITIS
     Dosage: UNK
     Route: 065
  4. CHLORHEXIDINE [Concomitant]
     Active Substance: CHLORHEXIDINE
     Indication: OSTEOARTHRITIS
     Dosage: UNK
     Route: 065

REACTIONS (6)
  - Pain [Unknown]
  - Candida infection [Unknown]
  - Groin pain [Unknown]
  - Arthritis bacterial [Unknown]
  - Off label use [Unknown]
  - Arthralgia [Unknown]
